FAERS Safety Report 4464634-0 (Version None)
Quarter: 2004Q4

REPORT INFORMATION
  Report Type: 
  Country: None (occurrence: None)
  Receive Date: 20041004
  Receipt Date: 20040922
  Transmission Date: 20050328
  Serious: Yes (Death)
  Sender: FDA-Public Use
  Company Number: US-JNJFOC-20040907631

PATIENT
  Age: 63 Year
  Sex: Male

DRUGS (1)
  1. RETEVASE [Suspect]
     Indication: DRUG USE FOR UNKNOWN INDICATION
     Dosage: 1 VIAL
     Route: 042

REACTIONS (1)
  - DEATH [None]
